FAERS Safety Report 7068401 (Version 2)
Quarter: 2014Q3

REPORT INFORMATION
  Report Type: Spontaneous
  Country: US (occurrence: None)
  Receive Date: 20090724
  Receipt Date: 20140716
  Transmission Date: 20150326
  Serious: Yes (Other)
  Sender: FDA-Public Use
  Company Number: 2009S1005470

PATIENT
  Age: 69 Year
  Sex: Female
  Weight: 53 kg

DRUGS (11)
  1. NEXIUM (ESOMEPRAZOLE MAGNESIUM) (UNKNOWN) [Concomitant]
  2. ASPIRIN (ACETYLSALICYLIC ACID) UNKNOWN [Concomitant]
  3. PHOSPHO-SODA [Suspect]
     Active Substance: SODIUM PHOSPHATE, DIBASIC\SODIUM PHOSPHATE, MONOBASIC
     Indication: COLONOSCOPY
     Dosage: PO
     Route: 048
     Dates: start: 20050223, end: 20050223
  4. ALPHAGAN (BRIMONIDINE TARTRATE) (UNKNOWN) [Concomitant]
  5. LIPITOR (ATORVASTATIN CALCIUM) (40 MILLIGRAM, UNKNOWN) [Concomitant]
  6. PREMARIN (ESTROGENS CONJUGATED) [Concomitant]
  7. CALCIUM (CALCIUM) (UNKNOWN) [Concomitant]
  8. HYZAAR (HYDROCHLOROTHIAZIDE, LOSARTAN POTASSIUM) (UNKNOWN) [Concomitant]
  9. PRILOSEC (OMEPRAZOLE) [Concomitant]
     Active Substance: OMEPRAZOLE MAGNESIUM
  10. TIMOPTIC (TIMOLOL MALEATE) UNKNOWN [Concomitant]
  11. TRICOR (FENOFIBRATE) (160 MILLIGRAM, UNKNOWN) [Concomitant]

REACTIONS (6)
  - Respiratory disorder [None]
  - Acute phosphate nephropathy [None]
  - Dysgeusia [None]
  - Renal failure chronic [None]
  - Nephrogenic anaemia [None]
  - Renal failure acute [None]

NARRATIVE: CASE EVENT DATE: 20050311
